FAERS Safety Report 23663427 (Version 1)
Quarter: 2024Q1

REPORT INFORMATION
  Report Type: Spontaneous
  Country: US (occurrence: None)
  Receive Date: 20240321
  Receipt Date: 20240321
  Transmission Date: 20240410
  Serious: Yes (Hospitalization)
  Sender: FDA-Public Use
  Company Number: None

PATIENT
  Age: 67 Year
  Sex: Female
  Weight: 98.9 kg

DRUGS (4)
  1. KEYTRUDA [Suspect]
     Active Substance: PEMBROLIZUMAB
     Indication: Ovarian cancer
     Dosage: FREQUENCY : EVERY THREE WEEKS;?
     Route: 042
     Dates: start: 20231019
  2. LENVIMA [Suspect]
     Active Substance: LENVATINIB
     Indication: Ovarian cancer
     Dosage: FREQUENCY : DAILY;?
     Route: 042
     Dates: start: 20231019, end: 20240123
  3. Taxol 60mg/m2 [Concomitant]
     Dates: start: 20231019, end: 20240103
  4. Taxol 50mg/m2 [Concomitant]
     Dates: start: 20240104, end: 20240125

REACTIONS (8)
  - Dyspnoea [None]
  - Cough [None]
  - Wheezing [None]
  - Rhonchi [None]
  - COVID-19 [None]
  - Bronchitis [None]
  - Atelectasis [None]
  - Bronchospasm [None]

NARRATIVE: CASE EVENT DATE: 20240321
